FAERS Safety Report 14183240 (Version 1)
Quarter: 2017Q4

REPORT INFORMATION
  Report Type: Spontaneous
  Country: US (occurrence: US)
  Receive Date: 20171113
  Receipt Date: 20171113
  Transmission Date: 20180321
  Serious: Yes (Hospitalization, Other)
  Sender: FDA-Public Use
  Company Number: US-ASTELLAS-2017US045804

PATIENT
  Age: 9 Year
  Sex: Female

DRUGS (6)
  1. TACROLIMUS. [Suspect]
     Active Substance: TACROLIMUS
     Dosage: UNK UNK, UNKNOWN FREQ. (GOAL 8-10 NG/ML)
     Route: 065
  2. TACROLIMUS. [Suspect]
     Active Substance: TACROLIMUS
     Indication: HEART TRANSPLANT
     Dosage: UNK UNK, UNKNOWN FREQ. (GOAL 4-6 NG/ML)
     Route: 065
  3. TACROLIMUS. [Suspect]
     Active Substance: TACROLIMUS
     Dosage: UNK UNK, UNKNOWN FREQ. (GOAL 2-4 NG/ML)
     Route: 065
  4. TACROLIMUS. [Suspect]
     Active Substance: TACROLIMUS
     Dosage: UNK UNK, UNKNOWN FREQ. (GOAL 4-6 NG/ML)
     Route: 065
  5. AZATHIOPRINE. [Suspect]
     Active Substance: AZATHIOPRINE
     Indication: HEART TRANSPLANT
     Dosage: UNK UNK, UNKNOWN FREQ.
     Route: 065
  6. SIROLIMUS. [Suspect]
     Active Substance: SIROLIMUS
     Indication: HEART TRANSPLANT
     Dosage: UNK UNK, UNKNOWN FREQ. (GOAL 6-8 NG/ML)
     Route: 065

REACTIONS (11)
  - Nephrotic syndrome [Unknown]
  - Epstein-Barr virus infection [Unknown]
  - Allergic gastroenteritis [Unknown]
  - Autoimmune dermatitis [Unknown]
  - Inflammation [Unknown]
  - Psoriasis [Unknown]
  - Eczema [Unknown]
  - Off label use [Unknown]
  - Autoimmune disorder [Unknown]
  - Nephropathy [Unknown]
  - Epstein-Barr virus associated lymphoproliferative disorder [Recovering/Resolving]
